FAERS Safety Report 5650427-5 (Version None)
Quarter: 2008Q1

REPORT INFORMATION
  Report Type: 
  Country: None (occurrence: None)
  Receive Date: 20080303
  Receipt Date: 20080221
  Transmission Date: 20080703
  Serious: Yes (Hospitalization, Other)
  Sender: FDA-Public Use
  Company Number: 2008SP003393

PATIENT
  Age: 75 Year
  Sex: Female

DRUGS (7)
  1. TEMOZOLOMIDE [Suspect]
     Indication: GLIOBLASTOMA MULTIFORME
     Dosage: 140 MG; QD; PO, 270 MG; QD; PO
     Route: 048
     Dates: start: 20060612, end: 20060810
  2. TEMOZOLOMIDE [Suspect]
     Indication: GLIOBLASTOMA MULTIFORME
     Dosage: 140 MG; QD; PO, 270 MG; QD; PO
     Route: 048
     Dates: start: 20061027
  3. PHENYTOIN SODIUM [Suspect]
     Indication: GLIOBLASTOMA MULTIFORME
     Dosage: 600 MG; QD; PO, 400 MG; QD;, 200 MG; QD;
     Dates: start: 20060101, end: 20061004
  4. PHENYTOIN SODIUM [Suspect]
     Indication: GLIOBLASTOMA MULTIFORME
     Dosage: 600 MG; QD; PO, 400 MG; QD;, 200 MG; QD;
     Dates: end: 20061004
  5. LAMOTRIGINE [Suspect]
     Indication: GLIOBLASTOMA MULTIFORME
     Dosage: 150 MG; ; PO, 300 MG; QW;
     Dates: start: 20061004
  6. LEVETIRACETAM [Suspect]
     Indication: GLIOBLASTOMA MULTIFORME
     Dosage: ; QD; PO, 500 MG; QD; PO
     Route: 048
     Dates: start: 20060101
  7. LEVETIRACETAM [Suspect]
     Indication: GLIOBLASTOMA MULTIFORME
     Dosage: ; QD; PO, 500 MG; QD; PO
     Route: 048
     Dates: start: 20061027

REACTIONS (9)
  - DISEASE RECURRENCE [None]
  - ECCHYMOSIS [None]
  - ELECTROENCEPHALOGRAM ABNORMAL [None]
  - ENCEPHALOMALACIA [None]
  - FEBRILE NEUTROPENIA [None]
  - GENERAL PHYSICAL CONDITION ABNORMAL [None]
  - NEOPLASM [None]
  - PANCYTOPENIA [None]
  - TREMOR [None]
